FAERS Safety Report 17079744 (Version 1)
Quarter: 2019Q4

REPORT INFORMATION
  Report Type: Spontaneous
  Country: IT (occurrence: IT)
  Receive Date: 20191127
  Receipt Date: 20191127
  Transmission Date: 20200122
  Serious: Yes (Death, Congenital Anomaly)
  Sender: FDA-Public Use
  Company Number: IT-AUROBINDO-AUR-APL-2019-074668

PATIENT

DRUGS (3)
  1. CARDIOASPIRINA [Suspect]
     Active Substance: ASPIRIN
     Indication: PRODUCT USED FOR UNKNOWN INDICATION
     Dosage: 1 DOSAGE FORM (MOTHER DOSE:1 DF)
     Route: 064
  2. EXJADE [Suspect]
     Active Substance: DEFERASIROX
     Indication: PRODUCT USED FOR UNKNOWN INDICATION
     Dosage: 1080 MILLIGRAM, ONCE A DAY (MOTHER DOSE: 1080 MG, QD)
     Route: 064
     Dates: start: 2011, end: 201901
  3. AMOXICILLIN. [Suspect]
     Active Substance: AMOXICILLIN
     Indication: PRODUCT USED FOR UNKNOWN INDICATION
     Dosage: UNK,ONCE A DAY (MOTHER DOSE: UNK DF, QD (HALF TABLET PER DAY))
     Route: 064
     Dates: end: 20190124

REACTIONS (2)
  - Trisomy 21 [Fatal]
  - Foetal exposure during pregnancy [Unknown]
